FAERS Safety Report 7793079-0 (Version None)
Quarter: 2011Q4

REPORT INFORMATION
  Report Type: 
  Country: None (occurrence: None)
  Receive Date: 20111003
  Receipt Date: 20110929
  Transmission Date: 20120403
  Serious: Yes (Other)
  Sender: FDA-Public Use
  Company Number: JP-PFIZER INC-2011208879

PATIENT
  Age: 68 Year
  Sex: Male

DRUGS (2)
  1. CELECOXIB [Suspect]
     Indication: PAIN
     Dosage: 200 MG, 1X/DAY
     Route: 048
     Dates: start: 20110802, end: 20110812
  2. LYRICA [Suspect]
     Indication: NEURALGIA
     Dosage: 75 MG, 2X/DAY
     Route: 048
     Dates: start: 20110802, end: 20110812

REACTIONS (5)
  - GASTROINTESTINAL ULCER [None]
  - FAECES DISCOLOURED [None]
  - DYSPNOEA [None]
  - DRUG INEFFECTIVE [None]
  - BACK PAIN [None]
